FAERS Safety Report 7425674-2 (Version None)
Quarter: 2011Q2

REPORT INFORMATION
  Report Type: 
  Country: None (occurrence: None)
  Receive Date: 20110420
  Receipt Date: 20110418
  Transmission Date: 20111010
  Serious: Yes (Hospitalization)
  Sender: FDA-Public Use
  Company Number: US-ABBOTT-11P-163-0717718-00

PATIENT
  Sex: Female
  Weight: 58.112 kg

DRUGS (3)
  1. HUMIRA [Suspect]
     Dates: start: 20101001
  2. PREDNISONE [Concomitant]
     Indication: RHEUMATOID ARTHRITIS
  3. HUMIRA [Suspect]
     Indication: RHEUMATOID ARTHRITIS
     Dates: start: 20070101, end: 20080101

REACTIONS (5)
  - RENAL CANCER [None]
  - MALAISE [None]
  - NIGHT SWEATS [None]
  - RHEUMATOID ARTHRITIS [None]
  - BLOOD TEST ABNORMAL [None]
